FAERS Safety Report 17751448 (Version 3)
Quarter: 2020Q2

REPORT INFORMATION
  Report Type: Spontaneous
  Country: US (occurrence: US)
  Receive Date: 20200506
  Receipt Date: 20200625
  Transmission Date: 20200714
  Serious: No
  Sender: FDA-Public Use
  Company Number: US-SA-2020SA117062

PATIENT

DRUGS (4)
  1. LANSOPRAZOLE. [Concomitant]
     Active Substance: LANSOPRAZOLE
     Route: 065
  2. DUPIXENT [Suspect]
     Active Substance: DUPILUMAB
     Indication: PRODUCT USED FOR UNKNOWN INDICATION
     Dosage: 300 MG, QOW
     Route: 058
     Dates: start: 202003
  3. ESTRADIOL. [Concomitant]
     Active Substance: ESTRADIOL
     Dosage: STOPPED
  4. RANITIDINE. [Concomitant]
     Active Substance: RANITIDINE
     Dosage: STOPPED
     Route: 065

REACTIONS (2)
  - Acne [Unknown]
  - Liver disorder [Unknown]

NARRATIVE: CASE EVENT DATE: 2020
